FAERS Safety Report 18496387 (Version 1)
Quarter: 2020Q4

REPORT INFORMATION
  Report Type: Spontaneous
  Country: AR (occurrence: AR)
  Receive Date: 20201112
  Receipt Date: 20201112
  Transmission Date: 20210114
  Serious: Yes (Other)
  Sender: FDA-Public Use
  Company Number: AR-PFIZER INC-2020443234

PATIENT
  Age: 69 Year
  Sex: Female

DRUGS (1)
  1. IBRANCE [Suspect]
     Active Substance: PALBOCICLIB
     Indication: BREAST CANCER METASTATIC
     Dosage: 125 MG, CYCLIC (3X1 SCHEME)
     Dates: start: 20200129

REACTIONS (3)
  - Neoplasm progression [Unknown]
  - Mood altered [Unknown]
  - Hepatic failure [Unknown]

NARRATIVE: CASE EVENT DATE: 202011
